FAERS Safety Report 9013033 (Version 1)
Quarter: 2013Q1

REPORT INFORMATION
  Report Type: Spontaneous
  Country: US (occurrence: US)
  Receive Date: 20130114
  Receipt Date: 20130114
  Transmission Date: 20140127
  Serious: No
  Sender: FDA-Public Use
  Company Number: US-009507513-1301USA005245

PATIENT
  Sex: Male

DRUGS (4)
  1. VICTRELIS [Suspect]
     Dosage: 4 DF, TID
     Route: 048
  2. RIBAVIRIN [Suspect]
     Route: 048
  3. PEGASYS [Suspect]
  4. VITAMINS (UNSPECIFIED) [Concomitant]

REACTIONS (1)
  - Discomfort [Unknown]
